FAERS Safety Report 24279038 (Version 1)
Quarter: 2024Q3

REPORT INFORMATION
  Report Type: Spontaneous
  Country: MY (occurrence: MY)
  Receive Date: 20240903
  Receipt Date: 20240903
  Transmission Date: 20241016
  Serious: Yes (Other)
  Sender: PERRIGO
  Company Number: MY-MLMSERVICE-20240821-PI169360-00199-1

PATIENT
  Age: 44 Year
  Sex: Female

DRUGS (1)
  1. LEVONORGESTREL [Suspect]
     Active Substance: LEVONORGESTREL
     Indication: Oral contraception
     Dosage: MULTIPLE EPISODE
     Route: 048

REACTIONS (2)
  - Intestinal ischaemia [Unknown]
  - Intestinal infarction [Unknown]
